FAERS Safety Report 6974779-9 (Version None)
Quarter: 2010Q3

REPORT INFORMATION
  Report Type: 
  Country: None (occurrence: None)
  Receive Date: 20100909
  Receipt Date: 20081216
  Transmission Date: 20110219
  Serious: No
  Sender: FDA-Public Use
  Company Number: US-WYE-H07342808

PATIENT
  Sex: Female
  Weight: 57.66 kg

DRUGS (5)
  1. PRISTIQ [Suspect]
     Indication: DEPRESSION
     Route: 048
     Dates: start: 20081215
  2. MIRALAX [Concomitant]
  3. ZOFRAN [Concomitant]
  4. MUCINEX [Concomitant]
  5. NEXIUM [Concomitant]

REACTIONS (1)
  - MEDICATION RESIDUE [None]
